FAERS Safety Report 23078131 (Version 2)
Quarter: 2023Q4

REPORT INFORMATION
  Report Type: Spontaneous
  Country: IT (occurrence: IT)
  Receive Date: 20231018
  Receipt Date: 20231025
  Transmission Date: 20240110
  Serious: Yes (Other)
  Sender: FDA-Public Use
  Company Number: IT-BIOVITRUM-2023-IT-014516

PATIENT
  Age: 39 Year
  Sex: Female

DRUGS (1)
  1. DOPTELET [Suspect]
     Active Substance: AVATROMBOPAG MALEATE
     Indication: Immune thrombocytopenia
     Dosage: 20 MG 1 TABLET/DAY
     Dates: start: 20230812

REACTIONS (9)
  - Arnold-Chiari malformation [Recovering/Resolving]
  - Myalgia [Recovering/Resolving]
  - Bone pain [Recovering/Resolving]
  - Temporomandibular joint syndrome [Recovering/Resolving]
  - Pyrexia [Recovered/Resolved]
  - Headache [Recovered/Resolved]
  - Nausea [Recovered/Resolved]
  - Rash [Recovering/Resolving]
  - Vomiting [Recovering/Resolving]

NARRATIVE: CASE EVENT DATE: 20230818
